FAERS Safety Report 7803166-6 (Version None)
Quarter: 2011Q4

REPORT INFORMATION
  Report Type: 
  Country: None (occurrence: None)
  Receive Date: 20111007
  Receipt Date: 20101102
  Transmission Date: 20120403
  Serious: No
  Sender: FDA-Public Use
  Company Number: US-ABBOTT-10P-163-0682913-00

PATIENT
  Age: 28 Year
  Sex: Female

DRUGS (4)
  1. TRUVADA [Suspect]
     Indication: VICTIM OF SEXUAL ABUSE
  2. KALETRA [Suspect]
     Indication: PROPHYLAXIS AGAINST HIV INFECTION
     Dosage: TOOK FOR THREE DAYS
     Dates: start: 20101001, end: 20101001
  3. TRUVADA [Suspect]
     Indication: PROPHYLAXIS AGAINST HIV INFECTION
     Dates: start: 20101001, end: 20101001
  4. KALETRA [Suspect]
     Indication: VICTIM OF SEXUAL ABUSE

REACTIONS (1)
  - VIITH NERVE PARALYSIS [None]
